FAERS Safety Report 5877236-6 (Version None)
Quarter: 2008Q3

REPORT INFORMATION
  Report Type: 
  Country: None (occurrence: None)
  Receive Date: 20080910
  Receipt Date: 20080902
  Transmission Date: 20090109
  Serious: Yes (Other)
  Sender: FDA-Public Use
  Company Number: US-PFIZER INC-2008073413

PATIENT
  Sex: Female
  Weight: 78.181 kg

DRUGS (3)
  1. AMLODIPINE [Suspect]
     Indication: HYPERTENSION
     Dates: start: 20080101
  2. LOVASTATIN [Concomitant]
  3. FLONASE [Concomitant]

REACTIONS (1)
  - PHOTOSENSITIVITY REACTION [None]
